FAERS Safety Report 7432764-7 (Version None)
Quarter: 2011Q2

REPORT INFORMATION
  Report Type: 
  Country: None (occurrence: None)
  Receive Date: 20110422
  Receipt Date: 20110415
  Transmission Date: 20111010
  Serious: Yes (Other)
  Sender: FDA-Public Use
  Company Number: A0924035A

PATIENT
  Weight: 79 kg

DRUGS (5)
  1. CLARITHROMYCIN [Concomitant]
     Dosage: 1G PER DAY
     Route: 048
     Dates: start: 20100102, end: 20100109
  2. OMEPRAZOLE [Concomitant]
     Indication: GASTRITIS
     Route: 048
     Dates: start: 20101002
  3. CAPECITABINE [Suspect]
     Dosage: 4000MG PER DAY
     Route: 048
     Dates: end: 20100930
  4. SUCRALFATE [Concomitant]
     Indication: GASTRITIS
     Route: 048
     Dates: start: 20101002
  5. LAPATINIB [Suspect]
     Dosage: 1250MG PER DAY
     Route: 048
     Dates: end: 20100930

REACTIONS (4)
  - PALMAR-PLANTAR ERYTHRODYSAESTHESIA SYNDROME [None]
  - TOXICITY TO VARIOUS AGENTS [None]
  - PAIN IN EXTREMITY [None]
  - HYPOKINESIA [None]
